FAERS Safety Report 19127557 (Version 1)
Quarter: 2021Q2

REPORT INFORMATION
  Report Type: Spontaneous
  Country: US (occurrence: US)
  Receive Date: 20210413
  Receipt Date: 20210413
  Transmission Date: 20210717
  Serious: Yes (Other)
  Sender: FDA-Public Use
  Company Number: None

PATIENT
  Age: 35 Year
  Sex: Male
  Weight: 58.5 kg

DRUGS (12)
  1. VITAMIN C [Concomitant]
     Active Substance: ASCORBIC ACID
  2. KCL [Concomitant]
     Active Substance: POTASSIUM CHLORIDE
  3. LEXAPRO [Concomitant]
     Active Substance: ESCITALOPRAM OXALATE
  4. WELLBUTRIN [Concomitant]
     Active Substance: BUPROPION HYDROCHLORIDE
  5. LISINOPRIL. [Concomitant]
     Active Substance: LISINOPRIL
  6. SILDENAFIL. [Concomitant]
     Active Substance: SILDENAFIL
  7. MULTIVITAMIN [Concomitant]
     Active Substance: VITAMINS
  8. BYSTOLIC [Concomitant]
     Active Substance: NEBIVOLOL HYDROCHLORIDE
  9. ZOLPIDEM [Concomitant]
     Active Substance: ZOLPIDEM TARTRATE
  10. PREGABALIN. [Concomitant]
     Active Substance: PREGABALIN
  11. TOLTER0DINE TARTARE 4 MG CAPSULE [Suspect]
     Active Substance: TOLTERODINE TARTRATE
     Indication: HYPERTONIC BLADDER
     Dosage: ?          QUANTITY:1 CAPSULE(S);??
     Route: 048
     Dates: start: 20210326, end: 20210405
  12. PROTONIX [Concomitant]
     Active Substance: PANTOPRAZOLE SODIUM

REACTIONS (2)
  - Anorgasmia [None]
  - Ejaculation disorder [None]

NARRATIVE: CASE EVENT DATE: 20210401
